FAERS Safety Report 7363960-5 (Version None)
Quarter: 2011Q1

REPORT INFORMATION
  Report Type: 
  Country: None (occurrence: None)
  Receive Date: 20110321
  Receipt Date: 20100601
  Transmission Date: 20110831
  Serious: Yes (Death)
  Sender: FDA-Public Use
  Company Number: US-TYCO HEALTHCARE/MALLINCKRODT-T201001152

PATIENT

DRUGS (6)
  1. FLUOXETINE [Concomitant]
  2. VERAPAMIL [Concomitant]
  3. METHADOSE [Suspect]
     Dosage: UNK
  4. COCAINE [Suspect]
     Dosage: UNK
  5. BENZODIAZEPINE DERIVATIVES [Suspect]
     Dosage: UNK
  6. OXYCODONE [Suspect]
     Dosage: UNK

REACTIONS (1)
  - TOXICITY TO VARIOUS AGENTS [None]
